FAERS Safety Report 6523782-1 (Version None)
Quarter: 2009Q4

REPORT INFORMATION
  Report Type: 
  Country: None (occurrence: None)
  Receive Date: 20091231
  Receipt Date: 20091130
  Transmission Date: 20100525
  Serious: No
  Sender: FDA-Public Use
  Company Number: US-BAYER-200941822NA

PATIENT
  Sex: Female
  Weight: 59 kg

DRUGS (1)
  1. YAZ [Suspect]
     Indication: ACNE
     Route: 048

REACTIONS (2)
  - DIZZINESS [None]
  - NAUSEA [None]
